FAERS Safety Report 11881903 (Version 2)
Quarter: 2016Q1

REPORT INFORMATION
  Report Type: Spontaneous
  Country: IT (occurrence: IT)
  Receive Date: 20151231
  Receipt Date: 20160121
  Transmission Date: 20160526
  Serious: Yes (Death, Other)
  Sender: FDA-Public Use
  Company Number: IT-PFIZER INC-2015456534

PATIENT
  Age: 28 Year
  Sex: Female

DRUGS (6)
  1. IDARUBICIN HCL [Suspect]
     Active Substance: IDARUBICIN HYDROCHLORIDE
     Indication: ACUTE MYELOID LEUKAEMIA
     Dosage: 10 MG/M2, CYCLIC (FOR 6 DAYS)
  2. IDARUBICIN HCL [Suspect]
     Active Substance: IDARUBICIN HYDROCHLORIDE
     Dosage: 32 MG/M2, CYCLIC (3 CYCLES)
     Dates: end: 199506
  3. CYTARABINE. [Suspect]
     Active Substance: CYTARABINE
     Indication: ACUTE MYELOID LEUKAEMIA
     Dosage: 6 MG/M2, CYCLIC
     Dates: end: 199506
  4. MITOXANTRONE HCL [Suspect]
     Active Substance: MITOXANTRONE HYDROCHLORIDE
     Indication: ACUTE MYELOID LEUKAEMIA
     Dosage: 50 MG/M2, CYCLIC
     Dates: end: 199506
  5. ETOPOSIDE. [Suspect]
     Active Substance: ETOPOSIDE
     Indication: ACUTE MYELOID LEUKAEMIA
     Dosage: 500 MG/M2, CYCLIC
     Dates: end: 199506
  6. 6-TIOGUANINE [Suspect]
     Active Substance: THIOGUANINE ANHYDROUS
     Indication: ACUTE MYELOID LEUKAEMIA
     Dosage: 1050 MG/M2, CYCLIC
     Dates: end: 199506

REACTIONS (2)
  - Second primary malignancy [Recovered/Resolved]
  - Acute lymphocytic leukaemia [Recovered/Resolved]

NARRATIVE: CASE EVENT DATE: 199509
